FAERS Safety Report 4550360-6 (Version None)
Quarter: 2004Q4

REPORT INFORMATION
  Report Type: 
  Country: None (occurrence: None)
  Receive Date: 20041227
  Receipt Date: 20040923
  Transmission Date: 20050328
  Serious: No
  Sender: FDA-Public Use
  Company Number: US092789

PATIENT

DRUGS (1)
  1. ARANESP [Suspect]
     Indication: HEPATITIS C
     Dosage: 200 MCG, SC
     Route: 058
     Dates: start: 20040629, end: 20040630

REACTIONS (4)
  - DIZZINESS [None]
  - INJECTION SITE PAIN [None]
  - INJECTION SITE SWELLING [None]
  - PRURITUS GENERALISED [None]
